FAERS Safety Report 7477485-X (Version None)
Quarter: 2011Q2

REPORT INFORMATION
  Report Type: 
  Country: None (occurrence: None)
  Receive Date: 20110513
  Receipt Date: 20110504
  Transmission Date: 20111010
  Serious: Yes (Hospitalization)
  Sender: FDA-Public Use
  Company Number: US-BIOGENIDEC-127240

PATIENT
  Age: 54 Year
  Sex: Female
  Weight: 42 kg

DRUGS (6)
  1. AVONEX [Suspect]
     Route: 030
     Dates: start: 20031001
  2. AVONEX [Suspect]
     Indication: MULTIPLE SCLEROSIS
     Route: 030
     Dates: start: 19961111, end: 19980101
  3. MEDICATION FOR MUSCLE SPASMS (NOS) [Concomitant]
     Indication: MUSCLE SPASMS
  4. DANTRIUM [Concomitant]
     Indication: MUSCLE SPASMS
  5. AVONEX [Suspect]
     Route: 030
     Dates: start: 20000101, end: 20031001
  6. VITAMINS (NOS) [Concomitant]
     Indication: VITAMIN SUPPLEMENTATION

REACTIONS (6)
  - VISUAL ACUITY REDUCED [None]
  - IDIOPATHIC THROMBOCYTOPENIC PURPURA [None]
  - MULTIPLE SCLEROSIS RELAPSE [None]
  - PLATELET COUNT DECREASED [None]
  - ABASIA [None]
  - OSTEOPOROSIS [None]
